FAERS Safety Report 10341127 (Version 2)
Quarter: 2014Q3

REPORT INFORMATION
  Report Type: Report from Study
  Country: NZ (occurrence: NZ)
  Receive Date: 20140724
  Receipt Date: 20140729
  Transmission Date: 20150326
  Serious: Yes (Hospitalization)
  Sender: FDA-Public Use
  Company Number: NZ-ONYX-2014-1580

PATIENT
  Age: 80 Year
  Sex: Male

DRUGS (14)
  1. DEXAMETHASONE. [Suspect]
     Active Substance: DEXAMETHASONE
     Indication: PLASMA CELL MYELOMA
     Route: 048
     Dates: start: 20140210, end: 20140722
  2. RECORMAN [Concomitant]
     Indication: RENAL FAILURE CHRONIC
     Route: 058
     Dates: start: 201012
  3. ALLOPURINOL. [Concomitant]
     Active Substance: ALLOPURINOL
     Indication: PROPHYLAXIS
     Route: 048
     Dates: start: 20140210
  4. CARFILZOMIB [Suspect]
     Active Substance: CARFILZOMIB
     Route: 042
     Dates: start: 20140217, end: 20140225
  5. CARFILZOMIB [Suspect]
     Active Substance: CARFILZOMIB
     Route: 042
     Dates: start: 20140310, end: 20140618
  6. CARFILZOMIB [Suspect]
     Active Substance: CARFILZOMIB
     Indication: PLASMA CELL MYELOMA
     Route: 042
     Dates: start: 20140210, end: 20140211
  7. ASPIRIN. [Concomitant]
     Active Substance: ASPIRIN
     Indication: THROMBOSIS PROPHYLAXIS
     Route: 048
     Dates: start: 200902
  8. PAMIDRONATE [Concomitant]
     Active Substance: PAMIDRONATE DISODIUM
     Indication: OSTEOPOROSIS PROPHYLAXIS
     Route: 042
     Dates: start: 20131015
  9. CAL-D-FORTE [Concomitant]
     Indication: RENAL FAILURE CHRONIC
     Route: 048
     Dates: start: 200902
  10. ZOPICLONE [Concomitant]
     Active Substance: ZOPICLONE
     Indication: INSOMNIA
     Route: 048
     Dates: start: 20131122
  11. CARFILZOMIB [Suspect]
     Active Substance: CARFILZOMIB
     Route: 042
     Dates: start: 20140630, end: 20140715
  12. OMEPRAZOLE. [Concomitant]
     Active Substance: OMEPRAZOLE
     Indication: PROPHYLAXIS
     Route: 048
     Dates: start: 200902
  13. ACICLOVIR [Concomitant]
     Active Substance: ACYCLOVIR
     Indication: ANTIVIRAL PROPHYLAXIS
     Route: 048
     Dates: start: 20140210
  14. CALCITRIOL. [Concomitant]
     Active Substance: CALCITRIOL
     Indication: RENAL FAILURE CHRONIC
     Route: 048
     Dates: start: 200902

REACTIONS (1)
  - Listeriosis [Not Recovered/Not Resolved]

NARRATIVE: CASE EVENT DATE: 20140718
